FAERS Safety Report 6867721-2 (Version None)
Quarter: 2010Q3

REPORT INFORMATION
  Report Type: 
  Country: None (occurrence: None)
  Receive Date: 20100722
  Receipt Date: 20100722
  Transmission Date: 20110219
  Serious: No
  Sender: FDA-Public Use
  Company Number: None

PATIENT
  Age: 63 Year
  Sex: Female
  Weight: 63.5036 kg

DRUGS (2)
  1. LEVAQUIN [Suspect]
     Indication: DIVERTICULITIS
     Dosage: 500 MG. DAILY ORALLY
     Route: 048
     Dates: start: 20051110, end: 20051214
  2. FLAGYL [Suspect]
     Indication: DIVERTICULITIS
     Dosage: 250 MG. DAILY ORALLY
     Route: 048
     Dates: start: 20051110, end: 20051214

REACTIONS (22)
  - ABDOMINAL PAIN [None]
  - ANXIETY [None]
  - ASTHENIA [None]
  - DIARRHOEA [None]
  - DIZZINESS [None]
  - DRY EYE [None]
  - DRY MOUTH [None]
  - HEADACHE [None]
  - INSOMNIA [None]
  - MUSCULAR WEAKNESS [None]
  - MUSCULOSKELETAL PAIN [None]
  - MUSCULOSKELETAL STIFFNESS [None]
  - NAUSEA [None]
  - NECK PAIN [None]
  - NIGHT SWEATS [None]
  - NIGHTMARE [None]
  - PAIN IN EXTREMITY [None]
  - PALPITATIONS [None]
  - TENDONITIS [None]
  - TREMOR [None]
  - VISION BLURRED [None]
  - WEIGHT DECREASED [None]
